FAERS Safety Report 8146980-2 (Version None)
Quarter: 2012Q1

REPORT INFORMATION
  Report Type: 
  Country: None (occurrence: None)
  Receive Date: 20120217
  Receipt Date: 20120209
  Transmission Date: 20120608
  Serious: Yes (Other)
  Sender: FDA-Public Use
  Company Number: CA-ASTRAZENECA-2012SE09191

PATIENT
  Age: 79 Year
  Sex: Female

DRUGS (8)
  1. ATACAND [Suspect]
     Route: 048
  2. METOPROLOL TARTRATE [Concomitant]
     Route: 048
  3. PRILOSEC [Suspect]
     Route: 048
     Dates: start: 20100101
  4. CRESTOR [Suspect]
     Route: 048
  5. ASPIRIN [Concomitant]
     Route: 048
  6. METFORMIN HCL [Concomitant]
     Indication: DIABETES MELLITUS
     Route: 048
  7. GLYBURIDE [Concomitant]
     Indication: DIABETES MELLITUS
     Route: 048
  8. FUROSEMIDE [Concomitant]
     Route: 048

REACTIONS (3)
  - PANCREATITIS [None]
  - ABDOMINAL PAIN UPPER [None]
  - BACK PAIN [None]
